FAERS Safety Report 6221333-2 (Version None)
Quarter: 2009Q2

REPORT INFORMATION
  Report Type: 
  Country: None (occurrence: None)
  Receive Date: 20090605
  Receipt Date: 20090602
  Transmission Date: 20091009
  Serious: Yes (Hospitalization)
  Sender: FDA-Public Use
  Company Number: DE-WYE-H05575508

PATIENT
  Age: 62 Year
  Sex: Male

DRUGS (2)
  1. RAPAMUNE [Suspect]
     Indication: PROPHYLAXIS AGAINST TRANSPLANT REJECTION
     Dosage: ORAL; 2 MG 1X PER 1 DAY ORAL
     Route: 048
     Dates: start: 20071228, end: 20080905
  2. RAPAMUNE [Suspect]
     Indication: PROPHYLAXIS AGAINST TRANSPLANT REJECTION
     Dosage: ORAL; 2 MG 1X PER 1 DAY ORAL
     Route: 048
     Dates: start: 20081004

REACTIONS (1)
  - HEPATIC NEOPLASM MALIGNANT RECURRENT [None]
